FAERS Safety Report 13107153 (Version 1)
Quarter: 2017Q1

REPORT INFORMATION
  Report Type: Spontaneous
  Country: GB (occurrence: GB)
  Receive Date: 20170112
  Receipt Date: 20170112
  Transmission Date: 20170428
  Serious: Yes (Other)
  Sender: FDA-Public Use
  Company Number: GB-DRREDDYS-GER/UKI/17/0086090

PATIENT
  Age: 20 Year
  Sex: Female
  Weight: 80 kg

DRUGS (1)
  1. FLUOXETINE [Suspect]
     Active Substance: FLUOXETINE HYDROCHLORIDE
     Indication: DEPRESSION
     Route: 048
     Dates: start: 20150330, end: 20160831

REACTIONS (3)
  - Flat affect [Recovering/Resolving]
  - Hypoaesthesia [Unknown]
  - Loss of libido [Recovering/Resolving]

NARRATIVE: CASE EVENT DATE: 20150901
